FAERS Safety Report 7439439-9 (Version None)
Quarter: 2011Q2

REPORT INFORMATION
  Report Type: 
  Country: None (occurrence: None)
  Receive Date: 20110427
  Receipt Date: 20110323
  Transmission Date: 20111010
  Serious: Yes (Other)
  Sender: FDA-Public Use
  Company Number: DE-BAYER-2011-011734

PATIENT
  Age: 41 Year
  Sex: Female
  Weight: 90 kg

DRUGS (3)
  1. MIRENA [Suspect]
     Indication: POLYMENORRHOEA
  2. MIRENA [Suspect]
     Indication: DYSMENORRHOEA
  3. MIRENA [Suspect]
     Indication: MENORRHAGIA
     Dosage: 20 ?G, CONT
     Route: 015
     Dates: start: 20110118, end: 20110128

REACTIONS (4)
  - TACHYCARDIA [None]
  - RESTLESSNESS [None]
  - URTICARIA [None]
  - HYPERSENSITIVITY [None]
